FAERS Safety Report 12127170 (Version 1)
Quarter: 2016Q1

REPORT INFORMATION
  Report Type: Report from Study
  Country: BR (occurrence: BR)
  Receive Date: 20160229
  Receipt Date: 20160229
  Transmission Date: 20160526
  Serious: Yes (Other)
  Sender: FDA-Public Use
  Company Number: PHHY2016BR025891

PATIENT
  Sex: Female
  Weight: 66 kg

DRUGS (1)
  1. RITALIN LA [Suspect]
     Active Substance: METHYLPHENIDATE HYDROCHLORIDE
     Indication: ATTENTION DEFICIT/HYPERACTIVITY DISORDER
     Dosage: 30 MG, QD
     Route: 048

REACTIONS (8)
  - Nausea [Unknown]
  - Tremor [Unknown]
  - Tachycardia [Unknown]
  - Attention deficit/hyperactivity disorder [Unknown]
  - Condition aggravated [Unknown]
  - Migraine [Unknown]
  - Aggression [Unknown]
  - Headache [Unknown]
